FAERS Safety Report 14013490 (Version 1)
Quarter: 2017Q3

REPORT INFORMATION
  Report Type: Report from Study
  Country: NL (occurrence: NL)
  Receive Date: 20170926
  Receipt Date: 20170926
  Transmission Date: 20171128
  Serious: Yes (Other)
  Sender: FDA-Public Use
  Company Number: NL-MYLANLABS-2017M1059542

PATIENT
  Age: 17 Year
  Sex: Female

DRUGS (1)
  1. METHYLPHENIDATE. [Suspect]
     Active Substance: METHYLPHENIDATE
     Indication: PRODUCT USED FOR UNKNOWN INDICATION
     Dosage: 7.1 MG/KG IMMEDIATE RELEASE
     Route: 048

REACTIONS (7)
  - Hypertension [Unknown]
  - Tachycardia [Unknown]
  - Agitation [Unknown]
  - Tachypnoea [Unknown]
  - Mydriasis [Unknown]
  - Toxicity to various agents [Unknown]
  - Headache [Unknown]
